FAERS Safety Report 7646672-X (Version None)
Quarter: 2011Q3

REPORT INFORMATION
  Report Type: 
  Country: None (occurrence: None)
  Receive Date: 20110729
  Receipt Date: 20110729
  Transmission Date: 20111222
  Serious: Yes (Hospitalization)
  Sender: FDA-Public Use
  Company Number: None

PATIENT
  Age: 85 Year
  Sex: Female
  Weight: 70.7611 kg

DRUGS (1)
  1. PLAVIX [Suspect]

REACTIONS (2)
  - COUGH [None]
  - BALANCE DISORDER [None]
